FAERS Safety Report 7835543-1 (Version None)
Quarter: 2011Q4

REPORT INFORMATION
  Report Type: 
  Country: None (occurrence: None)
  Receive Date: 20111024
  Receipt Date: 20111014
  Transmission Date: 20120403
  Serious: Yes (Hospitalization)
  Sender: FDA-Public Use
  Company Number: PHHO2009DE13032

PATIENT
  Sex: Female
  Weight: 54 kg

DRUGS (6)
  1. SANDIMMUNE [Suspect]
     Indication: RENAL TRANSPLANT
     Dosage: UNK
     Route: 048
  2. CORTICOSTEROIDS [Suspect]
     Indication: RENAL TRANSPLANT
     Dosage: UNK
  3. METHYLPREDNISOLONE [Concomitant]
  4. NO TREATMENT RECEIVED [Suspect]
     Indication: RENAL TRANSPLANT
     Dosage: NO TREATMENT RECEIVED
  5. SIMULECT [Suspect]
     Indication: RENAL TRANSPLANT
     Dosage: UNK
     Route: 048
  6. MYFORTIC [Suspect]
     Indication: RENAL TRANSPLANT
     Dosage: UNK

REACTIONS (1)
  - RENAL FAILURE [None]
